FAERS Safety Report 9000962 (Version 1)
Quarter: 2013Q1

REPORT INFORMATION
  Report Type: Spontaneous
  Country: US (occurrence: US)
  Receive Date: 20130107
  Receipt Date: 20130107
  Transmission Date: 20140127
  Serious: Yes (Hospitalization)
  Sender: FDA-Public Use
  Company Number: US-JNJFOC-20130100238

PATIENT
  Age: 43 Year
  Sex: Female

DRUGS (9)
  1. DARUNAVIR [Suspect]
     Indication: ANTIVIRAL TREATMENT
     Route: 048
  2. DARUNAVIR [Suspect]
     Indication: ANTIVIRAL TREATMENT
     Route: 048
  3. VALGANCICLOVIR [Suspect]
     Indication: ANTIVIRAL TREATMENT
     Route: 048
  4. RITONAVIR [Suspect]
     Indication: ANTIVIRAL TREATMENT
     Route: 065
  5. RITONAVIR [Suspect]
     Indication: ANTIVIRAL TREATMENT
     Route: 065
  6. EMTRICITABINE [Suspect]
     Indication: ANTIVIRAL TREATMENT
     Route: 065
  7. EMTRICITABINE [Suspect]
     Indication: ANTIVIRAL TREATMENT
     Route: 065
  8. TENOFOVIR [Suspect]
     Indication: ANTIVIRAL TREATMENT
     Route: 065
  9. TENOFOVIR [Suspect]
     Indication: ANTIVIRAL TREATMENT
     Route: 065

REACTIONS (1)
  - Pancreatitis necrotising [Recovered/Resolved]
